FAERS Safety Report 17668295 (Version 2)
Quarter: 2020Q3

REPORT INFORMATION
  Report Type: Spontaneous
  Country: DE (occurrence: DE)
  Receive Date: 20200415
  Receipt Date: 20200714
  Transmission Date: 20201102
  Serious: Yes (Hospitalization)
  Sender: FDA-Public Use
  Company Number: DE-AUROBINDO-AUR-APL-2020-017563

PATIENT
  Age: 14 Year
  Sex: Female
  Weight: 67 kg

DRUGS (3)
  1. SERTRALINE 50MG FILM?COATED TABLETS [Suspect]
     Active Substance: SERTRALINE HYDROCHLORIDE
     Indication: GENERALISED ANXIETY DISORDER
     Dosage: 50 MILLIGRAM, ONCE A DAY (50 MG, ONCE A DAY IN THE MORNING)
     Route: 048
     Dates: start: 201911
  2. SERTRALINE 50MG FILM?COATED TABLETS [Suspect]
     Active Substance: SERTRALINE HYDROCHLORIDE
     Dosage: 500 MILLIGRAM (0?10?0?0)
     Route: 065
     Dates: start: 20191229, end: 20191229
  3. SERTRALINE 50MG FILM?COATED TABLETS [Suspect]
     Active Substance: SERTRALINE HYDROCHLORIDE
     Dosage: 200 MG, SINGLE (4 TABLETS)
     Route: 048
     Dates: start: 20191228, end: 20191228

REACTIONS (9)
  - Intentional overdose [Unknown]
  - Tremor [Unknown]
  - Toxicity to various agents [Unknown]
  - Polymenorrhoea [Unknown]
  - Drug ineffective [Unknown]
  - Dizziness [Unknown]
  - Menorrhagia [Unknown]
  - Abdominal pain [Unknown]
  - Intentional product misuse [Unknown]

NARRATIVE: CASE EVENT DATE: 201911
